FAERS Safety Report 15766731 (Version 1)
Quarter: 2018Q4

REPORT INFORMATION
  Report Type: Spontaneous
  Country: RU (occurrence: RU)
  Receive Date: 20181227
  Receipt Date: 20181227
  Transmission Date: 20190205
  Serious: Yes (Hospitalization)
  Sender: FDA-Public Use
  Company Number: RU-ASTRAZENECA-2016SF01727

PATIENT
  Age: 66 Year
  Sex: Female
  Weight: 86 kg

DRUGS (5)
  1. LORISTA [Concomitant]
     Active Substance: LOSARTAN POTASSIUM
  2. VERAPAMIL [Concomitant]
     Active Substance: VERAPAMIL HYDROCHLORIDE
  3. FORXIGA [Suspect]
     Active Substance: DAPAGLIFLOZIN
     Indication: TYPE 2 DIABETES MELLITUS
     Route: 048
  4. FORXIGA [Suspect]
     Active Substance: DAPAGLIFLOZIN
     Indication: TYPE 2 DIABETES MELLITUS
     Route: 048
     Dates: start: 201607, end: 20160920
  5. METFORMIN [Concomitant]
     Active Substance: METFORMIN HYDROCHLORIDE

REACTIONS (2)
  - Myocardial infarction [Unknown]
  - Skin laxity [Not Recovered/Not Resolved]

NARRATIVE: CASE EVENT DATE: 201607
